FAERS Safety Report 15205542 (Version 1)
Quarter: 2018Q3

REPORT INFORMATION
  Report Type: Spontaneous
  Country: US (occurrence: US)
  Receive Date: 20180628
  Receipt Date: 20180628
  Transmission Date: 20181010
  Serious: Yes (Disabling)
  Sender: FDA-Public Use
  Company Number: None

PATIENT
  Age: 40 Year
  Sex: Male
  Weight: 103.5 kg

DRUGS (6)
  1. DIPROLENE OINTMENT [Concomitant]
  2. CIPROFLOXACIN. [Suspect]
     Active Substance: CIPROFLOXACIN
     Indication: EAR INFECTION
     Dosage: ?          QUANTITY:6 DF DOSAGE FORM;?
     Route: 048
     Dates: start: 20180403, end: 20180408
  3. BENAZEPRIL [Concomitant]
     Active Substance: BENAZEPRIL HYDROCHLORIDE
  4. AMPLODIPINE [Concomitant]
  5. ATORVASTATIN [Concomitant]
     Active Substance: ATORVASTATIN
  6. PROBIOTIC [Concomitant]
     Active Substance: PROBIOTICS NOS

REACTIONS (5)
  - Dry eye [None]
  - Influenza like illness [None]
  - Headache [None]
  - Neurological symptom [None]
  - Heart rate irregular [None]

NARRATIVE: CASE EVENT DATE: 20180408
